FAERS Safety Report 9276343 (Version 1)
Quarter: 2012Q4

REPORT INFORMATION
  Report Type: Spontaneous
  Country: JP (occurrence: None)
  Receive Date: 20121109
  Receipt Date: 20121109
  Transmission Date: 20130627
  Serious: Yes (Other)
  Sender: FDA-Public Use
  Company Number: 2012S1000222

PATIENT
  Age: 73 Year
  Sex: Male
  Weight: 55 kg

DRUGS (6)
  1. CUBICIN (DAPTOMYCIN) [Suspect]
     Indication: POSTOPERATIVE WOUND INFECTION
     Route: 041
     Dates: start: 20120130, end: 20120214
  2. RIFAMPICIN [Concomitant]
  3. VANCOMYCIN [Concomitant]
  4. AMLODIPINE [Concomitant]
  5. BLOPRESS [Concomitant]
  6. TENORMIN [Concomitant]

REACTIONS (1)
  - Interstitial lung disease [None]
